APPROVED DRUG PRODUCT: OMEPRAZOLE
Active Ingredient: OMEPRAZOLE
Strength: 20MG
Dosage Form/Route: TABLET, DELAYED RELEASE;ORAL
Application: N022032 | Product #001
Applicant: DEXCEL PHARMA TECHNOLOGIES LTD
Approved: Dec 4, 2007 | RLD: Yes | RS: Yes | Type: OTC